FAERS Safety Report 6268325-5 (Version None)
Quarter: 2009Q3

REPORT INFORMATION
  Report Type: 
  Country: None (occurrence: None)
  Receive Date: 20090714
  Receipt Date: 20090714
  Transmission Date: 20100115
  Serious: Yes (Life-Threatening)
  Sender: FDA-Public Use
  Company Number: None

PATIENT
  Age: 76 Year
  Sex: Male
  Weight: 90 kg

DRUGS (13)
  1. ZOSYN [Suspect]
     Dosage: ASDF ASF VAG
     Route: 067
     Dates: start: 20090304, end: 20090701
  2. CIPROFLOXACIN [Concomitant]
  3. CYCLOBENZAPRINE [Concomitant]
  4. DEXAMETHASONE [Concomitant]
  5. FENTANYL-100 [Concomitant]
  6. . [Concomitant]
  7. LEVOFLOXACIN [Concomitant]
  8. METOPROLOL TARTRATE [Concomitant]
  9. . [Concomitant]
  10. METRONIDAZOLE [Concomitant]
  11. PREGABALINE [Concomitant]
  12. . [Concomitant]
  13. SIMVASTATIN [Concomitant]

REACTIONS (1)
  - AGRANULOCYTOSIS [None]
